FAERS Safety Report 4558517-5 (Version None)
Quarter: 2005Q1

REPORT INFORMATION
  Report Type: 
  Country: None (occurrence: None)
  Receive Date: 20050121
  Receipt Date: 20050114
  Transmission Date: 20050727
  Serious: Yes (Death)
  Sender: FDA-Public Use
  Company Number: LB-MERCK-0501USA02653

PATIENT
  Age: 51 Year

DRUGS (1)
  1. CANCIDAS [Suspect]
     Indication: ASPERGILLOSIS
     Route: 042
     Dates: start: 20041201, end: 20050101

REACTIONS (1)
  - GRAFT VERSUS HOST DISEASE [None]
